FAERS Safety Report 24800016 (Version 1)
Quarter: 2025Q1

REPORT INFORMATION
  Report Type: Spontaneous
  Country: US (occurrence: US)
  Receive Date: 20250102
  Receipt Date: 20250102
  Transmission Date: 20250408
  Serious: Yes (Other)
  Sender: CENTRAL ADMIXTURE PHARMACY SERVICES, INC
  Company Number: US-Central Admixture Pharmacy Services, Inc. - Phoenix-2168205

PATIENT
  Sex: Male
  Weight: 2.43 kg

DRUGS (1)
  1. AMINO ACIDS\CALCIUM GLUCONATE MONOHYDRATE\DEXTROSE MONOHYDRATE\HEPARIN [Suspect]
     Active Substance: AMINO ACIDS\CALCIUM GLUCONATE MONOHYDRATE\DEXTROSE MONOHYDRATE\HEPARIN SODIUM
     Indication: Parenteral nutrition
     Dates: start: 20241215, end: 20241215

REACTIONS (1)
  - Administration site extravasation [Unknown]

NARRATIVE: CASE EVENT DATE: 20241215
